FAERS Safety Report 21389074 (Version 1)
Quarter: 2022Q3

REPORT INFORMATION
  Report Type: Spontaneous
  Country: FR (occurrence: FR)
  Receive Date: 20220929
  Receipt Date: 20220929
  Transmission Date: 20221026
  Serious: Yes (Hospitalization)
  Sender: FDA-Public Use
  Company Number: None

PATIENT
  Age: 57 Year
  Sex: Male

DRUGS (2)
  1. OLANZAPINE [Suspect]
     Active Substance: OLANZAPINE
     Indication: Poisoning deliberate
     Dosage: STRENGTH: 10 MG,
     Route: 065
  2. ACETAMINOPHEN\CODEINE PHOSPHATE [Suspect]
     Active Substance: ACETAMINOPHEN\CODEINE PHOSPHATE
     Indication: Poisoning deliberate
     Dosage: LINDILANE 400 MG/25 MG, TABLET
     Route: 065

REACTIONS (5)
  - Somnolence [Recovering/Resolving]
  - Dyskinesia [Recovering/Resolving]
  - Poisoning deliberate [Recovering/Resolving]
  - Disturbance in attention [Recovering/Resolving]
  - Rhabdomyolysis [Recovering/Resolving]

NARRATIVE: CASE EVENT DATE: 20220508
